FAERS Safety Report 13068352 (Version 1)
Quarter: 2016Q4

REPORT INFORMATION
  Report Type: Spontaneous
  Country: US (occurrence: US)
  Receive Date: 20161228
  Receipt Date: 20161228
  Transmission Date: 20170207
  Serious: No
  Sender: FDA-Public Use
  Company Number: US-BAYER-2016-241907

PATIENT
  Age: 83 Year
  Sex: Female
  Weight: 91 kg

DRUGS (5)
  1. BLOOD AND RELATED PRODUCTS [Concomitant]
     Active Substance: HUMAN BLOOD CELLS
  2. PERCOCET [Concomitant]
     Active Substance: ACETAMINOPHEN\OXYCODONE HYDROCHLORIDE
  3. INDERAL [Concomitant]
     Active Substance: PROPRANOLOL HYDROCHLORIDE
     Dosage: UNK
     Dates: start: 1970
  4. MIRALAX [Suspect]
     Active Substance: POLYETHYLENE GLYCOL 3350
     Indication: INFREQUENT BOWEL MOVEMENTS
     Dosage: 1 DF, UNK
     Route: 048
     Dates: start: 20161217
  5. BLOOD AND RELATED PRODUCTS [Concomitant]
     Active Substance: HUMAN BLOOD CELLS

REACTIONS (3)
  - Circumstance or information capable of leading to medication error [None]
  - Nausea [Recovered/Resolved]
  - Product use issue [Unknown]

NARRATIVE: CASE EVENT DATE: 20161217
